FAERS Safety Report 7463941-7 (Version None)
Quarter: 2011Q2

REPORT INFORMATION
  Report Type: 
  Country: None (occurrence: None)
  Receive Date: 20110506
  Receipt Date: 20110426
  Transmission Date: 20111010
  Serious: Yes (Life-Threatening)
  Sender: FDA-Public Use
  Company Number: PL-CELGENEUS-129-C5013-08041826

PATIENT
  Sex: Female
  Weight: 0.63 kg

DRUGS (3)
  1. PREDNISONE [Suspect]
     Indication: MULTIPLE MYELOMA
     Dosage: 128 MILLIGRAM
     Route: 065
     Dates: start: 20080318, end: 20080321
  2. LENALIDOMIDE [Suspect]
     Indication: MULTIPLE MYELOMA
     Dosage: 2.5 MILLIGRAM
     Route: 048
     Dates: start: 20080318, end: 20080407
  3. MELPHALAN HYDROCHLORIDE [Suspect]
     Indication: MULTIPLE MYELOMA
     Dosage: 6 MILLIGRAM
     Route: 065
     Dates: start: 20080318, end: 20080321

REACTIONS (1)
  - ANAEMIA [None]
